FAERS Safety Report 7893642-2 (Version None)
Quarter: 2011Q4

REPORT INFORMATION
  Report Type: 
  Country: None (occurrence: None)
  Receive Date: 20111104
  Receipt Date: 20111026
  Transmission Date: 20120403
  Serious: Yes (Hospitalization)
  Sender: FDA-Public Use
  Company Number: FR-GLAXOSMITHKLINE-B0758162A

PATIENT
  Sex: Male

DRUGS (3)
  1. DEPAKENE [Concomitant]
     Route: 065
  2. DEPAKENE [Concomitant]
     Indication: EPILEPSY
  3. LAMICTAL [Suspect]
     Indication: EPILEPSY
     Dosage: 50MG PER DAY
     Route: 048
     Dates: end: 20110812

REACTIONS (4)
  - NORMOCHROMIC NORMOCYTIC ANAEMIA [None]
  - LEUKOPENIA [None]
  - INFLAMMATION [None]
  - GENERAL PHYSICAL HEALTH DETERIORATION [None]
